FAERS Safety Report 5336311-5 (Version None)
Quarter: 2007Q2

REPORT INFORMATION
  Report Type: 
  Country: None (occurrence: None)
  Receive Date: 20070523
  Receipt Date: 20070508
  Transmission Date: 20071010
  Serious: Yes (Death)
  Sender: FDA-Public Use
  Company Number: T200700089

PATIENT
  Age: 24 Year
  Sex: Male

DRUGS (20)
  1. METHADOSE [Suspect]
     Indication: DRUG DEPENDENCE
     Dosage: 30 MG, SINGLE
     Dates: start: 20050105, end: 20050105
  2. METHADOSE [Suspect]
     Indication: DRUG REHABILITATION
     Dosage: 30 MG, SINGLE
     Dates: start: 20050105, end: 20050105
  3. METHADOSE [Suspect]
     Indication: DRUG DEPENDENCE
     Dosage: 30 MG, SINGLE
     Dates: start: 20050106, end: 20050106
  4. METHADOSE [Suspect]
     Indication: DRUG REHABILITATION
     Dosage: 30 MG, SINGLE
     Dates: start: 20050106, end: 20050106
  5. METHADOSE [Suspect]
     Indication: DRUG DEPENDENCE
     Dosage: 30 MG, SINGLE
     Dates: start: 20050101, end: 20050107
  6. METHADOSE [Suspect]
     Indication: DRUG REHABILITATION
     Dosage: 30 MG, SINGLE
     Dates: start: 20050101, end: 20050107
  7. METHADOSE [Suspect]
     Indication: DRUG DEPENDENCE
     Dosage: 30 MG, SINGLE
     Dates: start: 20050108, end: 20050108
  8. METHADOSE [Suspect]
     Indication: DRUG REHABILITATION
     Dosage: 30 MG, SINGLE
     Dates: start: 20050108, end: 20050108
  9. METHADOSE [Suspect]
     Indication: DRUG DEPENDENCE
     Dosage: 30 MG, SINGLE
     Dates: start: 20050109, end: 20050109
  10. METHADOSE [Suspect]
     Indication: DRUG REHABILITATION
     Dosage: 30 MG, SINGLE
     Dates: start: 20050109, end: 20050109
  11. METHADOSE [Suspect]
     Indication: DRUG DEPENDENCE
     Dosage: 30 MG, SINGLE
     Dates: start: 20050110, end: 20050110
  12. METHADOSE [Suspect]
     Indication: DRUG REHABILITATION
     Dosage: 30 MG, SINGLE
     Dates: start: 20050110, end: 20050110
  13. METHADOSE [Suspect]
     Indication: DRUG DEPENDENCE
     Dosage: 30 MG, SINGLE
     Dates: start: 20050111, end: 20050111
  14. METHADOSE [Suspect]
     Indication: DRUG REHABILITATION
     Dosage: 30 MG, SINGLE
     Dates: start: 20050111, end: 20050111
  15. METHADOSE [Suspect]
     Indication: DRUG DEPENDENCE
     Dosage: 30 MG, SINGLE
     Dates: start: 20050112, end: 20050112
  16. METHADOSE [Suspect]
     Indication: DRUG REHABILITATION
     Dosage: 30 MG, SINGLE
     Dates: start: 20050112, end: 20050112
  17. DOLOPHINE HCL [Suspect]
     Indication: DRUG DEPENDENCE
     Dosage: QD
  18. DOLOPHINE HCL [Suspect]
     Indication: DRUG REHABILITATION
     Dosage: QD
  19. HYDROCODONE (HYDROCODONE) [Concomitant]
  20. ZOLOFT [Concomitant]

REACTIONS (1)
  - DRUG TOXICITY [None]
